FAERS Safety Report 5943226-8 (Version None)
Quarter: 2008Q4

REPORT INFORMATION
  Report Type: 
  Country: None (occurrence: None)
  Receive Date: 20081106
  Receipt Date: 20081031
  Transmission Date: 20090506
  Serious: Yes (Hospitalization)
  Sender: FDA-Public Use
  Company Number: B0545005A

PATIENT
  Age: 27 Year
  Sex: Female

DRUGS (9)
  1. COMBIVIR [Suspect]
     Indication: HIV INFECTION
     Route: 048
     Dates: start: 20080901
  2. VIREAD [Suspect]
     Indication: HIV INFECTION
     Route: 048
     Dates: start: 20080901
  3. ASPEGIC 325 [Concomitant]
     Indication: HEADACHE
     Route: 065
     Dates: start: 20080928
  4. COVERSYL [Concomitant]
     Indication: DRUG USE FOR UNKNOWN INDICATION
     Dosage: 6MG PER DAY
     Route: 065
  5. TAHOR [Concomitant]
     Indication: DRUG USE FOR UNKNOWN INDICATION
     Dosage: 10MG UNKNOWN
     Route: 065
     Dates: start: 20080924
  6. KARDEGIC [Concomitant]
     Indication: DRUG USE FOR UNKNOWN INDICATION
     Dosage: 75MG UNKNOWN
     Route: 065
     Dates: start: 20080924
  7. CARDENSIEL [Concomitant]
     Indication: DRUG USE FOR UNKNOWN INDICATION
     Route: 065
     Dates: start: 20080925
  8. TENORMIN [Concomitant]
     Indication: DRUG USE FOR UNKNOWN INDICATION
     Route: 065
     Dates: start: 20080927
  9. ATARAX [Concomitant]
     Indication: DRUG USE FOR UNKNOWN INDICATION
     Route: 065
     Dates: start: 20080928

REACTIONS (7)
  - ASTHENIA [None]
  - CARDIOMYOPATHY [None]
  - CHEST PAIN [None]
  - DIZZINESS [None]
  - HEADACHE [None]
  - LEFT VENTRICULAR HYPERTROPHY [None]
  - MYALGIA [None]
